FAERS Safety Report 17591963 (Version 3)
Quarter: 2020Q2

REPORT INFORMATION
  Report Type: Spontaneous
  Country: FR (occurrence: FR)
  Receive Date: 20200327
  Receipt Date: 20200414
  Transmission Date: 20200713
  Serious: Yes (Hospitalization)
  Sender: FDA-Public Use
  Company Number: FR-CELGENEUS-FRA-20200302553

PATIENT
  Age: 11 Year
  Sex: Male
  Weight: 19 kg

DRUGS (29)
  1. MICAFUNGIN. [Concomitant]
     Active Substance: MICAFUNGIN SODIUM
     Indication: ANTIFUNGAL PROPHYLAXIS
     Dosage: 40 MILLIGRAM
     Route: 065
     Dates: start: 20200127
  2. MICAFUNGIN. [Concomitant]
     Active Substance: MICAFUNGIN SODIUM
     Indication: NEUTROPENIA
  3. BACTRIM [Concomitant]
     Active Substance: SULFAMETHOXAZOLE\TRIMETHOPRIM
     Indication: ANTIFUNGAL PROPHYLAXIS
     Dosage: 500 MILLIGRAM
     Route: 065
     Dates: start: 20191226
  4. CHLORGEXIDIN [Concomitant]
     Indication: DENTAL DISORDER PROPHYLAXIS
     Dosage: 300 MILLILITER
     Route: 061
     Dates: start: 20191230
  5. LEVOCETRIZINE [Concomitant]
     Active Substance: LEVOCETIRIZINE
     Dosage: 4 MILLIGRAM
     Route: 048
     Dates: start: 20200125
  6. AZACITIDINE. [Suspect]
     Active Substance: AZACITIDINE
     Route: 041
     Dates: start: 20200310
  7. VENETOCLAX. [Suspect]
     Active Substance: VENETOCLAX
     Dosage: 120 MILLIGRAM
     Route: 048
     Dates: start: 20200113, end: 20200227
  8. ONDANSETRON [Concomitant]
     Active Substance: ONDANSETRON
     Indication: VOMITING
     Dosage: 4 MILLIGRAM
     Route: 048
     Dates: start: 20200224
  9. RASBURICASE [Concomitant]
     Active Substance: RASBURICASE
     Indication: PROPHYLAXIS
     Route: 048
     Dates: start: 20191230, end: 20191230
  10. SODIUM BICARBONATE. [Concomitant]
     Active Substance: SODIUM BICARBONATE
     Indication: DENTAL DISORDER PROPHYLAXIS
     Dosage: 300 MILLILITER
     Route: 061
     Dates: start: 20191203
  11. ZINC. [Concomitant]
     Active Substance: ZINC
     Indication: DENTAL DISORDER PROPHYLAXIS
     Dosage: 300 MILLILITER
     Route: 061
     Dates: start: 20191230
  12. POLARAMINE [Concomitant]
     Active Substance: DEXCHLORPHENIRAMINE MALEATE
     Indication: PROPHYLAXIS
     Dosage: 2.5 MILLIGRAM
     Route: 041
     Dates: start: 20200103
  13. AZACITIDINE. [Suspect]
     Active Substance: AZACITIDINE
     Indication: HAEMATOLOGICAL MALIGNANCY
     Dosage: 75 MILLIGRAM/SQ. METER
     Route: 041
     Dates: start: 20200102, end: 20200108
  14. VENETOCLAX. [Suspect]
     Active Substance: VENETOCLAX
     Dosage: 60 MILLIGRAM
     Route: 048
     Dates: start: 20191231, end: 20191231
  15. LEVOCETRIZINE [Concomitant]
     Active Substance: LEVOCETIRIZINE
     Indication: PROPHYLAXIS
     Route: 048
     Dates: start: 20191230
  16. HYDROXYCARBAMIDE [Concomitant]
     Active Substance: HYDROXYUREA
     Indication: BONE MARROW DISORDER
     Dosage: 1000 MILLIGRAM
     Route: 048
     Dates: start: 20191230
  17. VENETOCLAX. [Suspect]
     Active Substance: VENETOCLAX
     Dosage: 120 MILLIGRAM
     Route: 048
     Dates: start: 20200310
  18. ONDANSETRON [Concomitant]
     Active Substance: ONDANSETRON
     Indication: NAUSEA
     Dosage: 4 MILLIGRAM
     Route: 041
     Dates: start: 20191230
  19. DEXTROSE. [Concomitant]
     Active Substance: DEXTROSE
     Indication: PROPHYLAXIS
     Route: 041
     Dates: start: 20191230, end: 20200109
  20. HYDROXYCARBAMIDE [Concomitant]
     Active Substance: HYDROXYUREA
     Dosage: 4 MILLIGRAM
     Route: 048
     Dates: start: 20200125
  21. BACTRIM [Concomitant]
     Active Substance: SULFAMETHOXAZOLE\TRIMETHOPRIM
     Indication: PROPHYLAXIS OF NAUSEA AND VOMITING
     Dosage: 500 MILLIGRAM
     Route: 041
     Dates: start: 20191230
  22. AZACITIDINE. [Suspect]
     Active Substance: AZACITIDINE
     Route: 041
     Dates: start: 20200130, end: 20200227
  23. VENETOCLAX. [Suspect]
     Active Substance: VENETOCLAX
     Indication: HAEMATOLOGICAL MALIGNANCY
     Dosage: 30 MILLIGRAM
     Route: 048
     Dates: start: 20191230, end: 20191230
  24. ONDANSETRON [Concomitant]
     Active Substance: ONDANSETRON
     Indication: PROPHYLAXIS OF NAUSEA AND VOMITING
  25. ACIDE TRANEXAMIQUE [Concomitant]
     Indication: HAEMORRHAGE
     Dosage: 4 GRAM
     Route: 061
     Dates: start: 20190113
  26. OSELTAMIVIR [Concomitant]
     Active Substance: OSELTAMIVIR
     Indication: INFLUENZA
     Dosage: 60 MILLIGRAM
     Route: 048
     Dates: start: 20200221
  27. AMYCAMINE [Concomitant]
     Indication: ANTIFUNGAL PROPHYLAXIS
     Dosage: 40 MILLIGRAM
     Route: 041
     Dates: start: 20200127
  28. VENETOCLAX. [Suspect]
     Active Substance: VENETOCLAX
     Dosage: 120 MILLIGRAM
     Route: 048
     Dates: start: 20200101, end: 20200112
  29. HYDROCORTISONE. [Concomitant]
     Active Substance: HYDROCORTISONE
     Indication: PRODUCT USED FOR UNKNOWN INDICATION
     Dosage: 25 MILLIGRAM
     Route: 041
     Dates: start: 20200103

REACTIONS (2)
  - Influenza [Recovered/Resolved]
  - Febrile neutropenia [Recovered/Resolved]

NARRATIVE: CASE EVENT DATE: 20200227
